FAERS Safety Report 22595507 (Version 1)
Quarter: 2023Q2

REPORT INFORMATION
  Report Type: Spontaneous
  Country: CZ (occurrence: CZ)
  Receive Date: 20230613
  Receipt Date: 20230613
  Transmission Date: 20230722
  Serious: Yes (Other)
  Sender: FDA-Public Use
  Company Number: None

PATIENT
  Age: 74 Year
  Sex: Male

DRUGS (1)
  1. BAVENCIO [Suspect]
     Active Substance: AVELUMAB
     Indication: Bladder cancer
     Dosage: ONLY TAKEN TWICE
     Route: 042
     Dates: start: 20230213, end: 20230227

REACTIONS (7)
  - Liver disorder [Recovered/Resolved]
  - Eyelid ptosis [Recovered/Resolved]
  - Muscular weakness [Recovered/Resolved]
  - Incontinence [Recovered/Resolved]
  - Myocarditis [Recovered/Resolved]
  - Myasthenic syndrome [Recovered/Resolved]
  - Asthenia [Recovered/Resolved]

NARRATIVE: CASE EVENT DATE: 20230306
